FAERS Safety Report 11918258 (Version 1)
Quarter: 2016Q1

REPORT INFORMATION
  Report Type: Spontaneous
  Country: US (occurrence: US)
  Receive Date: 20160115
  Receipt Date: 20160115
  Transmission Date: 20160526
  Serious: Yes (Other)
  Sender: FDA-Public Use
  Company Number: US-HOSPIRA-3117281

PATIENT
  Age: 43 Year
  Sex: Male
  Weight: 132.27 kg

DRUGS (3)
  1. IDARUBICIN [Suspect]
     Active Substance: IDARUBICIN
     Indication: ACUTE MYELOID LEUKAEMIA
     Dosage: 29 MG
     Route: 041
     Dates: start: 20151201, end: 20151203
  2. CYTARABINE. [Suspect]
     Active Substance: CYTARABINE
     Indication: ACUTE MYELOID LEUKAEMIA
     Dosage: 240 MG
     Route: 041
     Dates: start: 20151201, end: 20151208
  3. CYTARABINE. [Suspect]
     Active Substance: CYTARABINE
     Indication: ACUTE MYELOID LEUKAEMIA
     Dosage: 240 MG
     Route: 041
     Dates: start: 20151201, end: 20151208

REACTIONS (2)
  - Drug ineffective [Recovering/Resolving]
  - Acute myeloid leukaemia [Unknown]

NARRATIVE: CASE EVENT DATE: 20151214
